FAERS Safety Report 5357717-4 (Version None)
Quarter: 2007Q2

REPORT INFORMATION
  Report Type: 
  Country: None (occurrence: None)
  Receive Date: 20070614
  Receipt Date: 20070605
  Transmission Date: 20071010
  Serious: Yes (Hospitalization)
  Sender: FDA-Public Use
  Company Number: RO-PFIZER INC-2007031027

PATIENT
  Sex: Male
  Weight: 80 kg

DRUGS (5)
  1. SU-011,248 [Suspect]
     Indication: RENAL CELL CARCINOMA STAGE UNSPECIFIED
     Route: 048
     Dates: start: 20070105
  2. OXYCONTIN [Concomitant]
     Route: 048
  3. OXYCODONE HCL [Concomitant]
     Route: 048
     Dates: start: 20070201
  4. SPIRULINA [Concomitant]
     Route: 048
     Dates: start: 20061001
  5. COENZYME Q10 [Concomitant]
     Route: 048
     Dates: start: 20061001

REACTIONS (3)
  - ABDOMINAL PAIN UPPER [None]
  - HEPATITIS TOXIC [None]
  - HYPERBILIRUBINAEMIA [None]
